FAERS Safety Report 22622766 (Version 1)
Quarter: 2023Q2

REPORT INFORMATION
  Report Type: Spontaneous
  Country: CA (occurrence: CA)
  Receive Date: 20230621
  Receipt Date: 20230621
  Transmission Date: 20230721
  Serious: Yes (Other)
  Sender: FDA-Public Use
  Company Number: CA-JNJFOC-20230639282

PATIENT
  Age: 69 Year
  Sex: Male
  Weight: 91 kg

DRUGS (27)
  1. REMICADE [Suspect]
     Active Substance: INFLIXIMAB
     Indication: Crohn^s disease
     Route: 041
  2. INFLIXIMAB [Suspect]
     Active Substance: INFLIXIMAB
     Indication: Crohn^s disease
     Route: 042
  3. INFLIXIMAB [Suspect]
     Active Substance: INFLIXIMAB
     Route: 042
  4. INFLIXIMAB [Suspect]
     Active Substance: INFLIXIMAB
     Route: 042
  5. INFLIXIMAB [Suspect]
     Active Substance: INFLIXIMAB
     Route: 042
  6. INFLIXIMAB [Suspect]
     Active Substance: INFLIXIMAB
     Route: 042
  7. INFLIXIMAB [Suspect]
     Active Substance: INFLIXIMAB
     Route: 042
  8. ASPIRIN [Concomitant]
     Active Substance: ASPIRIN
  9. AMLODIPINE [Concomitant]
     Active Substance: AMLODIPINE BESYLATE
     Route: 065
  10. BISOPROLOL [Concomitant]
     Active Substance: BISOPROLOL
  11. BRIMONIDINE [Concomitant]
     Active Substance: BRIMONIDINE TARTRATE
     Route: 047
  12. BRINZOLAMIDE [Concomitant]
     Active Substance: BRINZOLAMIDE
     Route: 047
  13. CYANOCOBALAMIN [Concomitant]
     Active Substance: CYANOCOBALAMIN
  14. EMPAGLIFLOZIN [Concomitant]
     Active Substance: EMPAGLIFLOZIN
  15. ENTYVIO [Concomitant]
     Active Substance: VEDOLIZUMAB
     Route: 042
  16. FUROSEMIDE [Concomitant]
     Active Substance: FUROSEMIDE
  17. ISOPHANE INSULIN [Concomitant]
     Active Substance: INSULIN NOS
     Route: 058
  18. LATANOPROST [Concomitant]
     Active Substance: LATANOPROST
     Route: 047
  19. LEVOTHYROXINE SODIUM [Concomitant]
     Active Substance: LEVOTHYROXINE SODIUM
  20. PANTOPRAZOLE [Concomitant]
     Active Substance: PANTOPRAZOLE
     Route: 065
  21. PREDNISOLONE [Concomitant]
     Active Substance: PREDNISOLONE
     Route: 047
  22. PREGABALIN [Concomitant]
     Active Substance: PREGABALIN
     Route: 065
  23. ROSUVASTATIN [Concomitant]
     Active Substance: ROSUVASTATIN
     Route: 065
  24. SITAGLIPTIN [Concomitant]
     Active Substance: SITAGLIPTIN
  25. SODIUM POLYSTYRENE SULFONATE [Concomitant]
     Active Substance: SODIUM POLYSTYRENE SULFONATE
     Route: 048
  26. TIMOLOL [Concomitant]
     Active Substance: TIMOLOL
     Route: 047
  27. FERROUS SULFATE ANHYDROUS [Concomitant]
     Active Substance: FERROUS SULFATE ANHYDROUS
     Route: 065

REACTIONS (7)
  - Osteitis deformans [Not Recovered/Not Resolved]
  - Drug level below therapeutic [Not Recovered/Not Resolved]
  - Malaise [Not Recovered/Not Resolved]
  - Blood pressure increased [Not Recovered/Not Resolved]
  - Condition aggravated [Not Recovered/Not Resolved]
  - Incorrect dose administered [Not Recovered/Not Resolved]
  - Off label use [Not Recovered/Not Resolved]
